FAERS Safety Report 6142846-8 (Version None)
Quarter: 2009Q2

REPORT INFORMATION
  Report Type: 
  Country: None (occurrence: None)
  Receive Date: 20090403
  Receipt Date: 20090327
  Transmission Date: 20091009
  Serious: Yes (Death, Hospitalization)
  Sender: FDA-Public Use
  Company Number: DE-AMGEN-UK338690

PATIENT
  Sex: Female

DRUGS (9)
  1. NEULASTA [Suspect]
     Indication: NEUTROPENIA
     Route: 058
     Dates: start: 20090110
  2. MABTHERA [Concomitant]
     Route: 042
     Dates: start: 20090108, end: 20090108
  3. DEXAMETHASONE [Concomitant]
     Route: 042
     Dates: start: 20090109, end: 20090109
  4. PREDNISONE [Concomitant]
     Route: 042
     Dates: start: 20090109, end: 20090109
  5. MESNA [Concomitant]
     Dates: start: 20090109, end: 20090109
  6. CYCLOPHOSPHAMIDE [Concomitant]
     Route: 042
     Dates: start: 20090109, end: 20090109
  7. DOXORUBICIN HCL [Concomitant]
     Route: 042
     Dates: start: 20090109, end: 20090109
  8. VINCRISTINE [Concomitant]
     Route: 042
     Dates: start: 20090109, end: 20090109
  9. GRANISETRON HCL [Concomitant]
     Route: 042
     Dates: start: 20090109, end: 20090109

REACTIONS (3)
  - DRUG INEFFECTIVE [None]
  - MEDICATION ERROR [None]
  - NEUTROPENIA [None]
